FAERS Safety Report 10869484 (Version 1)
Quarter: 2015Q1

REPORT INFORMATION
  Report Type: Report from Study
  Country: US (occurrence: US)
  Receive Date: 20150226
  Receipt Date: 20150226
  Transmission Date: 20150721
  Serious: Yes (Hospitalization)
  Sender: FDA-Public Use
  Company Number: US-ACTELION-A-NJ2015-111550

PATIENT
  Age: 20 Month
  Sex: Male

DRUGS (10)
  1. ASPIRIN CHILDREN [Concomitant]
     Dosage: 81 MG, UNK
     Dates: start: 20140807
  2. FUROSEMIDE. [Concomitant]
     Active Substance: FUROSEMIDE
     Dosage: 8 MG, BID
     Route: 048
     Dates: start: 20140822
  3. CHLOROTHIAZIDE. [Concomitant]
     Active Substance: CHLOROTHIAZIDE
     Dosage: 50 MG, BID
     Route: 048
     Dates: start: 20150109
  4. PRILOSEC [Concomitant]
     Active Substance: OMEPRAZOLE MAGNESIUM
     Dosage: 4 ML, BID
     Route: 048
  5. ENALAPRIL [Concomitant]
     Active Substance: ENALAPRIL
     Dosage: 1.5 MG, BID
     Route: 048
     Dates: start: 20141020
  6. SILDENAFIL. [Concomitant]
     Active Substance: SILDENAFIL
     Dosage: 4 ML, TID
     Route: 048
     Dates: start: 20141030
  7. KEPPRA [Concomitant]
     Active Substance: LEVETIRACETAM
     Dosage: 0.8 ML, BID
     Route: 048
  8. ALDACTONE [Concomitant]
     Active Substance: SPIRONOLACTONE
     Dosage: 1.6 ML, Q12HRS
     Route: 048
  9. TRACLEER [Suspect]
     Active Substance: BOSENTAN\BOSENTAN MONOHYDRATE
     Indication: PULMONARY ARTERIAL HYPERTENSION
     Dosage: 31.25 MG, BID
     Route: 048
     Dates: start: 20141125
  10. ERYTHROMYCIN ETHYL SUCCINATE [Concomitant]
     Active Substance: ERYTHROMYCIN ETHYLSUCCINATE
     Dosage: 80 MG, TID
     Route: 048
     Dates: start: 20140825

REACTIONS (7)
  - Respiratory distress [Recovering/Resolving]
  - Oxygen saturation decreased [Recovering/Resolving]
  - Wheezing [Recovering/Resolving]
  - Respiratory syncytial virus bronchiolitis [Recovering/Resolving]
  - Rhinorrhoea [Recovering/Resolving]
  - Vomiting [Recovering/Resolving]
  - Cough [Recovering/Resolving]

NARRATIVE: CASE EVENT DATE: 20150108
